FAERS Safety Report 4730142-2 (Version None)
Quarter: 2005Q3

REPORT INFORMATION
  Report Type: 
  Country: None (occurrence: None)
  Receive Date: 20050728
  Receipt Date: 20050712
  Transmission Date: 20060218
  Serious: Yes (Hospitalization)
  Sender: FDA-Public Use
  Company Number: 216178

PATIENT
  Age: 70 Year
  Sex: Male
  Weight: 78.5 kg

DRUGS (8)
  1. AVASTIN [Suspect]
     Indication: COLON CANCER
     Dosage: 390 MG, Q2W , INTRAVENOUS
     Route: 042
     Dates: start: 20050604, end: 20050710
  2. 5-FU(FLUOROURACIL) [Suspect]
     Indication: COLON CANCER
  3. LEUCOVORIN CALCIUM [Suspect]
     Indication: COLON CANCER
  4. IRINOTECAN HCL [Suspect]
     Indication: COLON CANCER
  5. DIMITONE (CARVEDILOL) [Concomitant]
  6. ASAFLOW (ASPIRIN) [Concomitant]
  7. DAFALGAN (ACETAMINOPHEN) [Concomitant]
  8. LORAMET (LORMETAZEPAM) [Concomitant]

REACTIONS (4)
  - ANOREXIA [None]
  - DYSPHAGIA [None]
  - DYSPHASIA [None]
  - FUNGAL OESOPHAGITIS [None]
